FAERS Safety Report 9552106 (Version 1)
Quarter: 2013Q2

REPORT INFORMATION
  Report Type: Spontaneous
  Country: US (occurrence: None)
  Receive Date: 20130524
  Receipt Date: 20130524
  Transmission Date: 20140414
  Serious: No
  Sender: FDA-Public Use
  Company Number: PHEH2013US000731

PATIENT
  Age: 49 Year
  Sex: Female

DRUGS (1)
  1. GILENYA (FINGOLIMOD) [Suspect]
     Indication: MULTIPLE SCLEROSIS
     Route: 048

REACTIONS (4)
  - Crying [None]
  - Anxiety [None]
  - Blood pressure fluctuation [None]
  - Weight decreased [None]
